FAERS Safety Report 20289046 (Version 1)
Quarter: 2022Q1

REPORT INFORMATION
  Report Type: Spontaneous
  Country: US (occurrence: US)
  Receive Date: 20220104
  Receipt Date: 20220104
  Transmission Date: 20220423
  Serious: No
  Sender: FDA-Public Use
  Company Number: US-ELI_LILLY_AND_COMPANY-US202112002910

PATIENT
  Sex: Male

DRUGS (9)
  1. HUMULIN N [Suspect]
     Active Substance: INSULIN HUMAN
     Indication: Diabetes mellitus
     Dosage: 16 U, PRN (ON SLIDING SCALE)
     Route: 058
     Dates: start: 1979
  2. HUMULIN N [Suspect]
     Active Substance: INSULIN HUMAN
     Indication: Diabetes mellitus
     Dosage: 16 U, PRN (ON SLIDING SCALE)
     Route: 058
     Dates: start: 1979
  3. HUMULIN N [Suspect]
     Active Substance: INSULIN HUMAN
     Indication: Diabetes mellitus
     Dosage: 16 U, PRN (ON SLIDING SCALE)
     Route: 058
     Dates: start: 1979
  4. HUMULIN N [Suspect]
     Active Substance: INSULIN HUMAN
     Dosage: 16 U, PRN (ON SLIDING SCALE)
     Route: 058
  5. HUMULIN N [Suspect]
     Active Substance: INSULIN HUMAN
     Dosage: 16 U, PRN (ON SLIDING SCALE)
     Route: 058
  6. HUMULIN N [Suspect]
     Active Substance: INSULIN HUMAN
     Dosage: 16 U, PRN (ON SLIDING SCALE)
     Route: 058
  7. HUMULIN N [Suspect]
     Active Substance: INSULIN HUMAN
     Dosage: 16 U, PRN (ON SLIDING SCALE)
     Route: 058
  8. HUMULIN N [Suspect]
     Active Substance: INSULIN HUMAN
     Dosage: 16 U, PRN (ON SLIDING SCALE)
     Route: 058
  9. NOVOLOG [Concomitant]
     Active Substance: INSULIN ASPART
     Indication: Diabetes mellitus
     Dosage: 6 U, DAILY
     Route: 065

REACTIONS (3)
  - Arthritis [Not Recovered/Not Resolved]
  - Visual impairment [Not Recovered/Not Resolved]
  - Injury associated with device [Recovered/Resolved]

NARRATIVE: CASE EVENT DATE: 20190101
